FAERS Safety Report 24120558 (Version 1)
Quarter: 2024Q3

REPORT INFORMATION
  Report Type: Spontaneous
  Country: US (occurrence: None)
  Receive Date: 20240718
  Receipt Date: 20240718
  Transmission Date: 20241016
  Serious: Yes (Other)
  Sender: Public
  Company Number: None

PATIENT
  Age: 14 Year
  Sex: Male
  Weight: 60.75 kg

DRUGS (1)
  1. QELBREE [Suspect]
     Active Substance: VILOXAZINE HYDROCHLORIDE

REACTIONS (4)
  - Tension headache [None]
  - Migraine [None]
  - Drug ineffective [None]
  - Product dose omission issue [None]

NARRATIVE: CASE EVENT DATE: 20240621
